FAERS Safety Report 17242680 (Version 15)
Quarter: 2025Q3

REPORT INFORMATION
  Report Type: Spontaneous
  Country: US (occurrence: US)
  Receive Date: 20200107
  Receipt Date: 20250812
  Transmission Date: 20251020
  Serious: No
  Sender: VERTEX
  Company Number: US-VERTEX PHARMACEUTICALS-2019-013786

PATIENT
  Sex: Female
  Weight: 50 kg

DRUGS (12)
  1. TRIKAFTA [Suspect]
     Active Substance: ELEXACAFTOR\IVACAFTOR\TEZACAFTOR
     Indication: Cystic fibrosis
     Dosage: (2 ORANGE TABS) AM AND (1 BLUE TAB) PM
     Route: 048
     Dates: start: 20191105
  2. TRIKAFTA [Suspect]
     Active Substance: ELEXACAFTOR\IVACAFTOR\TEZACAFTOR
     Route: 048
  3. TRIKAFTA [Suspect]
     Active Substance: ELEXACAFTOR\IVACAFTOR\TEZACAFTOR
     Route: 048
  4. TRIKAFTA [Suspect]
     Active Substance: ELEXACAFTOR\IVACAFTOR\TEZACAFTOR
     Dosage: SWITCHED DOSE (BLUE TAB) IN AM AND (2 ORANGE TABS) IN PM
     Route: 048
  5. TRIKAFTA [Suspect]
     Active Substance: ELEXACAFTOR\IVACAFTOR\TEZACAFTOR
     Dosage: (1 TAB) AM AND (1 ORANGE TAB) PM
     Route: 048
     Dates: start: 202207
  6. TRIKAFTA [Suspect]
     Active Substance: ELEXACAFTOR\IVACAFTOR\TEZACAFTOR
     Dosage: ONE ORANGE TAB ONCE DAILY, NO BLUE TABLET
     Route: 048
  7. TRIKAFTA [Suspect]
     Active Substance: ELEXACAFTOR\IVACAFTOR\TEZACAFTOR
     Dosage: TWO ORANGE TABLETS IN THE MORNING AND ONE BLUE TABLET IN THE EVENING
     Route: 048
  8. TRIKAFTA [Suspect]
     Active Substance: ELEXACAFTOR\IVACAFTOR\TEZACAFTOR
     Dosage: ONE ORANGE TAB IN AM AND ONE BLUE TAB IN PM
     Route: 048
  9. PULMOZYME [Concomitant]
     Active Substance: DORNASE ALFA
  10. AZITHROMYCIN [Concomitant]
     Active Substance: AZITHROMYCIN
  11. SODIUM CHLORIDE [Concomitant]
     Active Substance: SODIUM CHLORIDE
  12. CALCIUM CITRATE\CHOLECALCIFEROL [Concomitant]
     Active Substance: CALCIUM CITRATE\CHOLECALCIFEROL

REACTIONS (16)
  - Drug eruption [Not Recovered/Not Resolved]
  - Acne [Recovering/Resolving]
  - Anxiety [Recovering/Resolving]
  - Acne cystic [Recovered/Resolved]
  - Initial insomnia [Not Recovered/Not Resolved]
  - Nightmare [Not Recovered/Not Resolved]
  - Pulmonary function test decreased [Unknown]
  - Breast swelling [Unknown]
  - Middle insomnia [Not Recovered/Not Resolved]
  - Blood glucose increased [Unknown]
  - Menstruation irregular [Not Recovered/Not Resolved]
  - Hormone level abnormal [Recovering/Resolving]
  - Weight increased [Unknown]
  - Increased appetite [Unknown]
  - Abdominal distension [Not Recovered/Not Resolved]
  - Infection parasitic [Unknown]

NARRATIVE: CASE EVENT DATE: 20190101
